FAERS Safety Report 6273154-2 (Version None)
Quarter: 2009Q3

REPORT INFORMATION
  Report Type: 
  Country: None (occurrence: None)
  Receive Date: 20090720
  Receipt Date: 20090708
  Transmission Date: 20100115
  Serious: Yes (Hospitalization, Other)
  Sender: FDA-Public Use
  Company Number: US-BAYER-US-SHR-04-022761

PATIENT
  Age: 66 Year
  Sex: Female

DRUGS (8)
  1. BETASERON [Suspect]
     Indication: PROGRESSIVE RELAPSING MULTIPLE SCLEROSIS
     Dosage: TOTAL DAILY DOSE: 8 MIU
     Route: 058
     Dates: start: 19940705
  2. BETASERON [Suspect]
     Dosage: TOTAL DAILY DOSE: 8 MIU
     Route: 058
     Dates: start: 19930909
  3. BETASERON [Suspect]
     Dosage: TOTAL DAILY DOSE: 8 MIU
     Route: 058
  4. NEURONTIN [Concomitant]
     Indication: NEURALGIA
     Dates: start: 20010101
  5. NEURONTIN [Concomitant]
     Dosage: TOTAL DAILY DOSE: 1300 MG
     Dates: start: 20070101
  6. KLONOPIN [Concomitant]
     Indication: MUSCLE SPASMS
     Dates: start: 20000101
  7. KLONOPIN [Concomitant]
     Dates: start: 20070101
  8. CYMBALTA [Concomitant]
     Indication: NEURALGIA
     Dates: start: 20070101

REACTIONS (13)
  - BLOOD PRESSURE DECREASED [None]
  - DIPLOPIA [None]
  - ERYTHEMA [None]
  - FATIGUE [None]
  - GAIT DISTURBANCE [None]
  - INJECTION SITE INFECTION [None]
  - INJECTION SITE PAIN [None]
  - MULTIPLE SCLEROSIS [None]
  - MUSCULAR WEAKNESS [None]
  - OEDEMA PERIPHERAL [None]
  - PYREXIA [None]
  - SOMNOLENCE [None]
  - VISION BLURRED [None]
